FAERS Safety Report 23418124 (Version 1)
Quarter: 2024Q1

REPORT INFORMATION
  Report Type: Spontaneous
  Country: US (occurrence: None)
  Receive Date: 20240118
  Receipt Date: 20240118
  Transmission Date: 20240409
  Serious: Yes (Life-Threatening, Other)
  Sender: FDA-Public Use
  Company Number: None

PATIENT
  Age: 19 Year
  Sex: Female
  Weight: 63 kg

DRUGS (2)
  1. NURTEC ODT [Suspect]
     Active Substance: RIMEGEPANT SULFATE
     Indication: Migraine
     Dates: start: 20240104, end: 20240104
  2. MULTI [Concomitant]

REACTIONS (9)
  - Hypotonia [None]
  - Depressed level of consciousness [None]
  - Wheezing [None]
  - Rash [None]
  - Dyspnoea [None]
  - Heart rate irregular [None]
  - Emotional distress [None]
  - Pain [None]
  - Fatigue [None]

NARRATIVE: CASE EVENT DATE: 20240104
